FAERS Safety Report 5339260-1 (Version None)
Quarter: 2007Q2

REPORT INFORMATION
  Report Type: 
  Country: None (occurrence: None)
  Receive Date: 20070322
  Receipt Date: 20061114
  Transmission Date: 20071010
  Serious: Yes (Other)
  Sender: FDA-Public Use
  Company Number: 200614340BCC

PATIENT
  Age: 64 Year
  Sex: Female
  Weight: 82.5547 kg

DRUGS (6)
  1. ALEVE (CAPLET) [Suspect]
     Indication: EXOSTOSIS
     Dosage: 220 MG, QD, ORAL
     Route: 048
     Dates: start: 20061008
  2. NORPACE CR [Concomitant]
  3. NIFEDIPINE [Concomitant]
  4. TOPROL-XL [Concomitant]
  5. ZELNORM [Concomitant]
  6. PROTONIX [Concomitant]

REACTIONS (1)
  - BLOOD PRESSURE INCREASED [None]
